FAERS Safety Report 20417460 (Version 1)
Quarter: 2022Q1

REPORT INFORMATION
  Report Type: Spontaneous
  Country: DE (occurrence: DE)
  Receive Date: 20220202
  Receipt Date: 20220202
  Transmission Date: 20220423
  Serious: Yes (Other)
  Sender: FDA-Public Use
  Company Number: DE-009507513-2201DEU002793

PATIENT
  Age: 79 Year
  Sex: Male

DRUGS (7)
  1. AXITINIB [Suspect]
     Active Substance: AXITINIB
     Indication: Metastatic renal cell carcinoma
     Dosage: UNK
     Dates: start: 2019
  2. AXITINIB [Suspect]
     Active Substance: AXITINIB
     Dosage: 3 MG, 2X/DAY
     Dates: start: 2020
  3. PEMBROLIZUMAB [Suspect]
     Active Substance: PEMBROLIZUMAB
     Indication: Metastatic renal cell carcinoma
     Dosage: UNK
     Dates: start: 2019, end: 2020
  4. EDOXABAN [Concomitant]
     Active Substance: EDOXABAN
     Indication: Atrial fibrillation
     Dosage: UNK
  5. PRAVASTATIN [Concomitant]
     Active Substance: PRAVASTATIN
     Indication: Cardiac failure
     Dosage: UNK
  6. RAMIPRIL [Concomitant]
     Active Substance: RAMIPRIL
     Indication: Cardiac failure
     Dosage: UNK
  7. TORSEMIDE [Concomitant]
     Active Substance: TORSEMIDE
     Indication: Cardiac failure
     Dosage: UNK

REACTIONS (16)
  - Encephalitis autoimmune [Unknown]
  - Tongue biting [Unknown]
  - Hemiparesis [Unknown]
  - Hepatic lesion [Unknown]
  - Aspartate aminotransferase increased [Unknown]
  - Alanine aminotransferase increased [Unknown]
  - Autoimmune thyroiditis [Unknown]
  - Dysarthria [Unknown]
  - Hemianopia [Unknown]
  - Cognitive disorder [Unknown]
  - Toxicity to various agents [Unknown]
  - IIIrd nerve paresis [Unknown]
  - Hypothyroidism [Unknown]
  - Blood brain barrier defect [Unknown]
  - Anosognosia [Unknown]
  - Disorientation [Unknown]

NARRATIVE: CASE EVENT DATE: 20200101
